FAERS Safety Report 22323601 (Version 1)
Quarter: 2023Q2

REPORT INFORMATION
  Report Type: Spontaneous
  Country: US (occurrence: US)
  Receive Date: 20230516
  Receipt Date: 20230516
  Transmission Date: 20230722
  Serious: Yes (Other)
  Sender: FDA-Public Use
  Company Number: US-002147023-NVSC2023US109139

PATIENT
  Age: 12 Year
  Sex: Female

DRUGS (3)
  1. PIRFENIDONE [Suspect]
     Active Substance: PIRFENIDONE
     Indication: Pulmonary fibrosis
     Dosage: 125 MG/M2, QD (DIVIDED EVERY 8 H)
     Route: 065
  2. PIRFENIDONE [Suspect]
     Active Substance: PIRFENIDONE
     Dosage: 250 MG/M2, QD (DIVIDED EVERY 8 H)
     Route: 065
  3. PIRFENIDONE [Suspect]
     Active Substance: PIRFENIDONE
     Dosage: 500 MG/M2, QD (DIVIDED EVERY 8 H)
     Route: 065

REACTIONS (3)
  - Pulmonary fibrosis [Unknown]
  - Disease progression [Unknown]
  - Product use issue [Unknown]
